FAERS Safety Report 13130238 (Version 1)
Quarter: 2017Q1

REPORT INFORMATION
  Report Type: Spontaneous
  Country: BR (occurrence: BR)
  Receive Date: 20170119
  Receipt Date: 20170119
  Transmission Date: 20170428
  Serious: Yes (Hospitalization)
  Sender: FDA-Public Use
  Company Number: BR-GLAXOSMITHKLINE-BR2017GSK004320

PATIENT
  Age: 91 Year
  Sex: Female

DRUGS (2)
  1. ZINNAT [Suspect]
     Active Substance: CEFUROXIME AXETIL
     Indication: PRODUCT USED FOR UNKNOWN INDICATION
     Dosage: 250 MG, QD
     Route: 048
  2. ZINNAT [Suspect]
     Active Substance: CEFUROXIME AXETIL
     Dosage: 500 MG, UNK
     Route: 048
     Dates: start: 20170108

REACTIONS (5)
  - Dizziness [Unknown]
  - Walking disability [Unknown]
  - Pleural effusion [Unknown]
  - Urinary tract infection [Unknown]
  - Urine output decreased [Unknown]
